FAERS Safety Report 5262592-2 (Version None)
Quarter: 2007Q1

REPORT INFORMATION
  Report Type: 
  Country: None (occurrence: None)
  Receive Date: 20070312
  Receipt Date: 20070307
  Transmission Date: 20070707
  Serious: Yes (Death, Hospitalization)
  Sender: FDA-Public Use
  Company Number: DE-JNJFOC-20070103972

PATIENT
  Age: 65 Year
  Sex: Male

DRUGS (13)
  1. TAVANIC [Suspect]
     Indication: CHRONIC OBSTRUCTIVE PULMONARY DISEASE
     Route: 048
     Dates: start: 20070105, end: 20070110
  2. AMITRIPTYLINE HCL [Concomitant]
     Indication: PAIN
     Route: 048
  3. AMITRIPTYLINE HCL [Concomitant]
     Indication: DEPRESSION
     Route: 048
  4. ISOPTIN [Concomitant]
     Indication: ATRIAL FIBRILLATION
     Route: 048
  5. ISOPTIN [Concomitant]
     Indication: HYPERTENSION
     Route: 048
  6. BEROTEC [Concomitant]
     Indication: CHRONIC OBSTRUCTIVE PULMONARY DISEASE
     Route: 055
  7. BUDESONIDE [Concomitant]
     Indication: CHRONIC OBSTRUCTIVE PULMONARY DISEASE
     Route: 055
  8. MST [Concomitant]
     Indication: PAIN
     Route: 048
  9. NOVALGIN [Concomitant]
     Route: 065
  10. MOVICOL [Concomitant]
     Route: 065
  11. ACC [Concomitant]
     Route: 065
  12. AMBROXOL [Concomitant]
     Route: 065
  13. AUGMENTIN '125' [Concomitant]
     Indication: OSTEOPOROSIS
     Route: 065

REACTIONS (2)
  - CHRONIC OBSTRUCTIVE PULMONARY DISEASE [None]
  - CONVULSION [None]
